FAERS Safety Report 4285448-0 (Version None)
Quarter: 2004Q1

REPORT INFORMATION
  Report Type: 
  Country: None (occurrence: None)
  Receive Date: 20040202
  Receipt Date: 20040202
  Transmission Date: 20041129
  Serious: Yes (Hospitalization)
  Sender: FDA-Public Use
  Company Number: None

PATIENT
  Sex: Male
  Weight: 83.0083 kg

DRUGS (6)
  1. WARFARIN SODIUM [Suspect]
     Indication: ATRIAL FIBRILLATION
     Dosage: 4 MG PO QD
     Route: 048
  2. DIGOXIN [Concomitant]
  3. AMLODIPINE [Concomitant]
  4. ESOMEPRAZOLE [Concomitant]
  5. FINASTERIDE [Concomitant]
  6. NITROFURANTOIN [Concomitant]

REACTIONS (4)
  - DYSARTHRIA [None]
  - FALL [None]
  - POST PROCEDURAL COMPLICATION [None]
  - SUBDURAL HAEMATOMA [None]
